FAERS Safety Report 15781201 (Version 1)
Quarter: 2018Q4

REPORT INFORMATION
  Report Type: Spontaneous
  Country: US (occurrence: US)
  Receive Date: 20181227
  Receipt Date: 20181227
  Transmission Date: 20190205
  Serious: No
  Sender: FDA-Public Use
  Company Number: None

PATIENT

DRUGS (5)
  1. METFORMIN HCL [Suspect]
     Active Substance: METFORMIN HYDROCHLORIDE
  2. NAPROXEN. [Suspect]
     Active Substance: NAPROXEN
  3. LOSARTAN. [Suspect]
     Active Substance: LOSARTAN
  4. OMEPRAZOLE. [Suspect]
     Active Substance: OMEPRAZOLE
  5. LOVASTATIN. [Suspect]
     Active Substance: LOVASTATIN

REACTIONS (3)
  - Product appearance confusion [None]
  - Product blister packaging issue [None]
  - Intercepted product dispensing error [None]
